FAERS Safety Report 11687347 (Version 1)
Quarter: 2015Q4

REPORT INFORMATION
  Report Type: Spontaneous
  Country: US (occurrence: US)
  Receive Date: 20151030
  Receipt Date: 20151030
  Transmission Date: 20160304
  Serious: Yes (Other)
  Sender: FDA-Public Use
  Company Number: US-BAYER-2015-449089

PATIENT
  Age: 62 Year
  Sex: Male
  Weight: 84.81 kg

DRUGS (2)
  1. BAYER ASPIRIN REGIMEN REGULAR 325 MG STRENGTH [Suspect]
     Active Substance: ASPIRIN
     Indication: ANALGESIC THERAPY
     Dosage: 1-2 AS NEEDED
     Route: 048
  2. DIPHENHYDRAMINE. [Concomitant]
     Active Substance: DIPHENHYDRAMINE

REACTIONS (4)
  - Facial paresis [None]
  - Transient ischaemic attack [None]
  - Ear pain [None]
  - Ear haemorrhage [None]

NARRATIVE: CASE EVENT DATE: 20150923
